FAERS Safety Report 7517154-0 (Version None)
Quarter: 2011Q2

REPORT INFORMATION
  Report Type: 
  Country: None (occurrence: None)
  Receive Date: 20110601
  Receipt Date: 20110531
  Transmission Date: 20111010
  Serious: Yes (Hospitalization)
  Sender: FDA-Public Use
  Company Number: ES-PFIZER INC-2011112900

PATIENT
  Age: 73 Year
  Sex: Male

DRUGS (14)
  1. DARBEPOETIN ALFA [Concomitant]
  2. IRON [Concomitant]
  3. OMEPRAZOLE [Concomitant]
  4. AMIODARONE HCL [Suspect]
     Indication: ATRIAL FIBRILLATION
     Dosage: 200 MG TABLET (DAILY DOSE UNKNOWN)
     Route: 048
  5. NITROGLYCERIN [Concomitant]
  6. ASPIRIN [Interacting]
     Indication: ATRIAL FIBRILLATION
     Dosage: UNK, DAILY
     Route: 048
     Dates: end: 20100706
  7. ATORVASTATIN [Concomitant]
  8. ENALAPRIL MALEATE [Concomitant]
  9. WARFARIN SODIUM [Interacting]
     Indication: ATRIAL FIBRILLATION
     Dosage: UNK, DAILY
     Route: 048
     Dates: end: 20100706
  10. HYDRALAZINE HYDROCHLORIDE [Concomitant]
  11. FUROSEMIDE [Concomitant]
  12. ALLOPURINOL [Interacting]
     Indication: HYPERURICAEMIA
     Dosage: UNK, DAILY
     Route: 048
  13. SPIRIVA [Concomitant]
  14. ALDACTONE [Concomitant]

REACTIONS (2)
  - LOWER GASTROINTESTINAL HAEMORRHAGE [None]
  - DRUG INTERACTION [None]
